FAERS Safety Report 19084457 (Version 3)
Quarter: 2022Q2

REPORT INFORMATION
  Report Type: Report from Study
  Country: CA (occurrence: CA)
  Receive Date: 20210401
  Receipt Date: 20220601
  Transmission Date: 20220721
  Serious: Yes (Hospitalization, Other)
  Sender: FDA-Public Use
  Company Number: NVSC2020CA201168

PATIENT
  Age: 67 Year
  Sex: Male

DRUGS (2)
  1. MAYZENT [Suspect]
     Active Substance: SIPONIMOD
     Indication: Relapsing-remitting multiple sclerosis
     Dosage: 2 MG, QD
     Route: 048
     Dates: start: 20200711
  2. MAYZENT [Suspect]
     Active Substance: SIPONIMOD
     Indication: Secondary progressive multiple sclerosis
     Dosage: UNK
     Route: 048
     Dates: start: 20200715

REACTIONS (9)
  - Cerebrovascular accident [Unknown]
  - Visual field defect [Not Recovered/Not Resolved]
  - Photopsia [Not Recovered/Not Resolved]
  - Retinal detachment [Unknown]
  - Macular oedema [Unknown]
  - Tremor [Unknown]
  - Abnormal sensation in eye [Unknown]
  - Headache [Unknown]
  - Drug ineffective [Unknown]

NARRATIVE: CASE EVENT DATE: 20200714
